FAERS Safety Report 25583682 (Version 1)
Quarter: 2025Q3

REPORT INFORMATION
  Report Type: Spontaneous
  Country: EU (occurrence: EU)
  Receive Date: 20250721
  Receipt Date: 20250721
  Transmission Date: 20251021
  Serious: Yes (Other)
  Sender: CELLTRION
  Company Number: EU-ROCHE-10000241567

PATIENT

DRUGS (12)
  1. RITUXIMAB [Suspect]
     Active Substance: RITUXIMAB
     Indication: Diffuse large B-cell lymphoma
     Route: 065
  2. CYCLOPHOSPHAMIDE [Concomitant]
     Active Substance: CYCLOPHOSPHAMIDE
  3. DOXORUBICIN HYDROCHLORIDE [Concomitant]
     Active Substance: DOXORUBICIN HYDROCHLORIDE
  4. VINCRISTINE SULFATE [Concomitant]
     Active Substance: VINCRISTINE SULFATE
  5. PREDNISONE [Concomitant]
     Active Substance: PREDNISONE
  6. DEXAMETHASONE [Concomitant]
     Active Substance: DEXAMETHASONE
  7. CYTARABINE [Concomitant]
     Active Substance: CYTARABINE
  8. CISPLATIN [Concomitant]
     Active Substance: CISPLATIN
  9. TISAGENLECLEUCEL [Concomitant]
     Active Substance: TISAGENLECLEUCEL
  10. RIBAVIRIN [Concomitant]
     Active Substance: RIBAVIRIN
     Route: 048
  11. RIBAVIRIN [Concomitant]
     Active Substance: RIBAVIRIN
     Route: 048
     Dates: start: 202305
  12. INTERFERON ALFA-2A [Concomitant]
     Active Substance: INTERFERON ALFA-2A

REACTIONS (1)
  - Hepatic cirrhosis [Unknown]
